FAERS Safety Report 19646493 (Version 1)
Quarter: 2021Q3

REPORT INFORMATION
  Report Type: Spontaneous
  Country: US (occurrence: US)
  Receive Date: 20210801
  Receipt Date: 20210801
  Transmission Date: 20211014
  Serious: Yes (Life-Threatening, Disabling, Other)
  Sender: FDA-Public Use
  Company Number: None

PATIENT
  Age: 33 Year
  Sex: Female
  Weight: 56.7 kg

DRUGS (7)
  1. MIRENA [Suspect]
     Active Substance: LEVONORGESTREL
     Dates: start: 20210101, end: 20210726
  2. SPIRONOLACTONE. [Concomitant]
     Active Substance: SPIRONOLACTONE
  3. VITAMIN C [Concomitant]
     Active Substance: ASCORBIC ACID
  4. PAXIL [Concomitant]
     Active Substance: PAROXETINE HYDROCHLORIDE
  5. NUTRAFOL VITAMIN [Concomitant]
  6. VITAMIN B [Concomitant]
     Active Substance: VITAMIN B
  7. ALBUTEROL INHALER [Concomitant]
     Active Substance: ALBUTEROL

REACTIONS (3)
  - Fear [None]
  - Hypoglycaemia [None]
  - Autophobia [None]

NARRATIVE: CASE EVENT DATE: 20210701
